FAERS Safety Report 8071538-3 (Version None)
Quarter: 2012Q1

REPORT INFORMATION
  Report Type: 
  Country: None (occurrence: None)
  Receive Date: 20120125
  Receipt Date: 20120118
  Transmission Date: 20120608
  Serious: Yes (Other)
  Sender: FDA-Public Use
  Company Number: PHEH2011US011159

PATIENT
  Sex: Female

DRUGS (9)
  1. HEMATINIC [Concomitant]
  2. ZOCOR [Suspect]
  3. DIOVAN HCT [Suspect]
     Dosage: 1 DF, QD
  4. SYNTHROID [Concomitant]
  5. CEREFOLIN [Concomitant]
  6. TEMAZEPAM [Concomitant]
  7. GLYCOAX [Concomitant]
  8. TOPROL-XL [Concomitant]
  9. PLAVIX [Concomitant]

REACTIONS (1)
  - BLOOD PRESSURE INCREASED [None]
